FAERS Safety Report 5323452-1 (Version None)
Quarter: 2007Q2

REPORT INFORMATION
  Report Type: 
  Country: None (occurrence: None)
  Receive Date: 20070514
  Receipt Date: 20070504
  Transmission Date: 20071010
  Serious: Yes (Hospitalization, Other)
  Sender: FDA-Public Use
  Company Number: PHNU2006DE04147

PATIENT
  Age: 56 Year
  Sex: Male
  Weight: 72 kg

DRUGS (10)
  1. LORZAAR [Concomitant]
     Dosage: 50-0-0 MG/DAY
  2. HYDROCHLOROTHIAZIDE [Concomitant]
     Dosage: 12.5 MG/DAY
  3. UROXATRAL [Concomitant]
     Dosage: 0-0-10 MG/DAY
  4. PRAVASTATIN [Concomitant]
     Dosage: 0-0-10 MG/DAY
  5. AVODART [Concomitant]
     Dosage: EVERY SECOND DAY
  6. TEGRETOL [Suspect]
     Indication: DYSTONIA
     Dosage: 150 MG, BID
     Route: 048
     Dates: start: 20061018, end: 20061001
  7. TEGRETOL [Suspect]
     Dosage: 225-0-375 MG/DAY, SLOW DOSAGE INCREASE
     Route: 048
     Dates: start: 20061001
  8. TEGRETOL [Suspect]
     Dosage: 375-0-487.5 MG/DAY, SLOW DOSAGE DECREASE
     Route: 048
     Dates: end: 20061127
  9. TEGRETOL [Suspect]
     Dosage: 337.5-0-487.5 MG/DAY
     Route: 048
     Dates: start: 20061128, end: 20070201
  10. TEGRETOL [Suspect]
     Dosage: 300-0-450 MG/DAY
     Route: 048
     Dates: start: 20070201

REACTIONS (12)
  - CONTUSION [None]
  - DRUG INEFFECTIVE [None]
  - DYSTONIA [None]
  - ERYTHEMA [None]
  - FALL [None]
  - LYMPHADENOPATHY [None]
  - NAIL DISORDER [None]
  - OEDEMA [None]
  - PRURITUS [None]
  - PYREXIA [None]
  - URTICARIA GENERALISED [None]
  - WEIGHT INCREASED [None]
